FAERS Safety Report 5911282-9 (Version None)
Quarter: 2008Q4

REPORT INFORMATION
  Report Type: 
  Country: None (occurrence: None)
  Receive Date: 20081007
  Receipt Date: 20081002
  Transmission Date: 20090506
  Serious: No
  Sender: FDA-Public Use
  Company Number: US-B.I. PHARMACEUTICALS,INC./RIDGEFIELD-2008-BP-15301BP

PATIENT

DRUGS (1)
  1. SPIRIVA [Suspect]

REACTIONS (1)
  - CONDITION AGGRAVATED [None]
